FAERS Safety Report 16302025 (Version 1)
Quarter: 2019Q2

REPORT INFORMATION
  Report Type: Report from Study
  Country: IN (occurrence: IN)
  Receive Date: 20190512
  Receipt Date: 20190512
  Transmission Date: 20190711
  Serious: Yes (Death, Other)
  Sender: FDA-Public Use
  Company Number: PHHY2017IN138221

PATIENT
  Age: 64 Year
  Sex: Female

DRUGS (2)
  1. GLIVEC [Suspect]
     Active Substance: IMATINIB MESYLATE
     Dosage: 100 MG, QD
     Route: 065
  2. GLIVEC [Suspect]
     Active Substance: IMATINIB MESYLATE
     Indication: CHRONIC MYELOID LEUKAEMIA
     Dosage: 400 MG, QD
     Route: 065

REACTIONS (3)
  - Death [Fatal]
  - Drug intolerance [Unknown]
  - Renal impairment [Unknown]

NARRATIVE: CASE EVENT DATE: 20190506
